FAERS Safety Report 6474336-7 (Version None)
Quarter: 2009Q4

REPORT INFORMATION
  Report Type: 
  Country: None (occurrence: None)
  Receive Date: 20091204
  Receipt Date: 20091124
  Transmission Date: 20100525
  Serious: Yes (Other)
  Sender: FDA-Public Use
  Company Number: GB-ABBOTT-07P-167-0358664-00

PATIENT
  Age: 51 Year
  Sex: Female

DRUGS (3)
  1. KLARICID [Suspect]
     Indication: TRACHEITIS
     Dates: start: 20070117, end: 20070119
  2. DICLOFENAC [Concomitant]
     Indication: ARTHRALGIA
     Dates: start: 20070110, end: 20070117
  3. CIPROFLOXACIN [Concomitant]
     Indication: LOWER RESPIRATORY TRACT INFECTION

REACTIONS (2)
  - RASH [None]
  - VASCULITIS [None]
